FAERS Safety Report 10026869 (Version 2)
Quarter: 2014Q2

REPORT INFORMATION
  Report Type: Spontaneous
  Country: IL (occurrence: IL)
  Receive Date: 20140321
  Receipt Date: 20140520
  Transmission Date: 20141212
  Serious: Yes (Death)
  Sender: FDA-Public Use
  Company Number: IL-CELGENEUS-082-POMAL-14031606

PATIENT
  Sex: Male
  Weight: 84 kg

DRUGS (3)
  1. POMALYST [Suspect]
     Indication: PLASMA CELL MYELOMA RECURRENT
     Route: 048
     Dates: start: 20131020, end: 20131223
  2. COUMADIN [Concomitant]
     Indication: PRODUCT USED FOR UNKNOWN INDICATION
     Route: 065
  3. NORMITEN [Concomitant]
     Indication: PRODUCT USED FOR UNKNOWN INDICATION
     Route: 065

REACTIONS (3)
  - Sepsis [Fatal]
  - Pneumonia [Fatal]
  - Hepatic failure [Fatal]
